FAERS Safety Report 10029565 (Version 1)
Quarter: 2014Q1

REPORT INFORMATION
  Report Type: Spontaneous
  Country: PR (occurrence: None)
  Receive Date: 20140320
  Receipt Date: 20140320
  Transmission Date: 20141002
  Serious: Yes (Disabling, Other)
  Sender: FDA-Public Use
  Company Number: None

PATIENT
  Age: 31 Year
  Sex: Female
  Weight: 45.81 kg

DRUGS (6)
  1. NORTRIPTYLINE [Suspect]
     Indication: PROPHYLAXIS
     Dosage: 2 PILLS
     Route: 048
     Dates: start: 20131216, end: 20140218
  2. NORTRIPTYLINE [Suspect]
     Indication: HEADACHE
     Dosage: 2 PILLS
     Route: 048
     Dates: start: 20131216, end: 20140218
  3. PROTECT PLUS VITAMINS [Concomitant]
  4. BIOTIN [Concomitant]
  5. FOLIC ACID [Concomitant]
  6. VITAMIN C [Concomitant]

REACTIONS (17)
  - Balance disorder [None]
  - Confusional state [None]
  - Disorientation [None]
  - Constipation [None]
  - Dizziness [None]
  - Somnolence [None]
  - Coordination abnormal [None]
  - Gastrointestinal disorder [None]
  - Dry mouth [None]
  - Nausea [None]
  - Abdominal pain upper [None]
  - Dysgeusia [None]
  - Fatigue [None]
  - Vomiting [None]
  - Asthenia [None]
  - Panic attack [None]
  - Depression [None]
